FAERS Safety Report 13427735 (Version 2)
Quarter: 2017Q2

REPORT INFORMATION
  Report Type: Report from Study
  Country: GR (occurrence: GR)
  Receive Date: 20170411
  Receipt Date: 20170529
  Transmission Date: 20170830
  Serious: Yes (Death)
  Sender: FDA-Public Use
  Company Number: GR-ROCHE-1918769

PATIENT
  Sex: Female

DRUGS (2)
  1. ERIVEDGE [Suspect]
     Active Substance: VISMODEGIB
     Indication: BASAL CELL CARCINOMA
     Dosage: 1X1
     Route: 048
     Dates: start: 201612, end: 20170314
  2. CO DIOVAN [Concomitant]
     Active Substance: HYDROCHLOROTHIAZIDE\VALSARTAN
     Indication: HYPERTENSION
     Dosage: 160+25 MG
     Route: 048
     Dates: end: 20170314

REACTIONS (3)
  - Pyrexia [Recovered/Resolved]
  - Pulmonary oedema [Fatal]
  - Viral infection [Recovered/Resolved]

NARRATIVE: CASE EVENT DATE: 20170314
